FAERS Safety Report 14360887 (Version 1)
Quarter: 2018Q1

REPORT INFORMATION
  Report Type: Spontaneous
  Country: US (occurrence: US)
  Receive Date: 20180105
  Receipt Date: 20180105
  Transmission Date: 20180509
  Serious: No
  Sender: FDA-Public Use
  Company Number: None

PATIENT
  Age: 87 Year
  Sex: Female

DRUGS (1)
  1. IBRANCE [Suspect]
     Active Substance: PALBOCICLIB
     Indication: BREAST CANCER FEMALE
     Route: 048
     Dates: start: 20170823, end: 20180104

REACTIONS (4)
  - Decreased appetite [None]
  - Asthenia [None]
  - Dizziness [None]
  - Fatigue [None]

NARRATIVE: CASE EVENT DATE: 20180104
